FAERS Safety Report 18482115 (Version 1)
Quarter: 2020Q4

REPORT INFORMATION
  Report Type: Spontaneous
  Country: CN (occurrence: CN)
  Receive Date: 20201109
  Receipt Date: 20201109
  Transmission Date: 20210114
  Serious: Yes (Other)
  Sender: FDA-Public Use
  Company Number: CN-009507513-2011CHN004987

PATIENT
  Age: 53 Year
  Sex: Male
  Weight: 60 kg

DRUGS (3)
  1. PACLITAXEL ALBUMIN [Suspect]
     Active Substance: PACLITAXEL
     Dosage: 450 MILLIGRAM, ONCE; ON DAY 1 FOR THE SYMPTOMS; MANUFACTURER: HENGRUI PHARMACEUTICAL
     Route: 041
     Dates: start: 20201005, end: 20201005
  2. AVASTIN [Suspect]
     Active Substance: BEVACIZUMAB
     Dosage: 500 MILLIGRAM, ONCE; ON DAY 1 FOR THE SYMPTOMS; MANUFACTURER: ROCHE PHARMACEUTICALS
     Route: 041
     Dates: start: 20201005, end: 20201005
  3. KEYTRUDA [Suspect]
     Active Substance: PEMBROLIZUMAB
     Dosage: 200 MILLIGRAM, ONCE; ON DAY 1 FOR THE SYMPTOMS
     Route: 041
     Dates: start: 20201005, end: 20201005

REACTIONS (2)
  - Haemoglobin decreased [Recovering/Resolving]
  - Red blood cell count decreased [Recovering/Resolving]

NARRATIVE: CASE EVENT DATE: 20201008
